FAERS Safety Report 5307755-2 (Version None)
Quarter: 2007Q2

REPORT INFORMATION
  Report Type: 
  Country: None (occurrence: None)
  Receive Date: 20070418
  Receipt Date: 20070409
  Transmission Date: 20071010
  Serious: Yes (Hospitalization)
  Sender: FDA-Public Use
  Company Number: 231512K07USA

PATIENT
  Age: 60 Year
  Sex: Female
  Weight: 102.5129 kg

DRUGS (3)
  1. REBIF [Suspect]
     Indication: MULTIPLE SCLEROSIS
     Dosage: 44 MCG, 3 IN 1 WEEKS, SUBCUTANEOUS
     Route: 058
     Dates: start: 20061122, end: 20070301
  2. PREDNISONE (CORTICOSTEROIDS FOR SYSTEMIC USE) [Concomitant]
  3. DIABETES MEDICATION (DRUG USED IN DIABETES) [Concomitant]

REACTIONS (3)
  - CHRONIC OBSTRUCTIVE PULMONARY DISEASE [None]
  - CONDITION AGGRAVATED [None]
  - INFLUENZA [None]
